FAERS Safety Report 17679236 (Version 1)
Quarter: 2020Q2

REPORT INFORMATION
  Report Type: Spontaneous
  Country: GB (occurrence: GB)
  Receive Date: 20200417
  Receipt Date: 20200417
  Transmission Date: 20200714
  Serious: Yes (Other)
  Sender: FDA-Public Use
  Company Number: GB-TEVA-2020-GB-1224443

PATIENT
  Age: 38 Year
  Sex: Female

DRUGS (1)
  1. CLARITHROMYCIN CITRATE [Suspect]
     Active Substance: CLARITHROMYCIN CITRATE
     Indication: TONSILLITIS
     Dosage: 1000 MG
     Route: 048
     Dates: start: 20200325, end: 20200326

REACTIONS (2)
  - Dyspnoea [Unknown]
  - Dermatitis allergic [Not Recovered/Not Resolved]
